FAERS Safety Report 25232875 (Version 2)
Quarter: 2025Q2

REPORT INFORMATION
  Report Type: Report from Study
  Country: CA (occurrence: CA)
  Receive Date: 20250424
  Receipt Date: 20250627
  Transmission Date: 20250717
  Serious: Yes (Death)
  Sender: ROCHE
  Company Number: CA-ROCHE-10000266566

PATIENT
  Sex: Male

DRUGS (1)
  1. VABYSMO [Suspect]
     Active Substance: FARICIMAB-SVOA
     Indication: Neovascular age-related macular degeneration
     Route: 065
     Dates: start: 20231106, end: 20240830

REACTIONS (1)
  - Death [Fatal]
